FAERS Safety Report 8658576 (Version 2)
Quarter: 2012Q4

REPORT INFORMATION
  Report Type: 
  Country: MX (occurrence: MX)
  Receive Date: 20120710
  Receipt Date: 20121009
  Transmission Date: 20130627
  Serious: Yes (Death, Other)
  Sender: FDA-Public Use
  Company Number: PHHY2012MX058163

PATIENT
  Sex: Male

DRUGS (2)
  1. ONBREZ [Suspect]
     Indication: CHRONIC OBSTRUCTIVE PULMONARY DISEASE
     Dosage: 150 ug, QD
     Dates: start: 20110708
  2. OXYGEN [Concomitant]

REACTIONS (3)
  - Pulmonary fibrosis [Fatal]
  - Aphagia [Unknown]
  - Cystic fibrosis [Fatal]
